FAERS Safety Report 9703327 (Version 2)
Quarter: 2013Q4

REPORT INFORMATION
  Report Type: Report from Study
  Country: BR (occurrence: BR)
  Receive Date: 20131122
  Receipt Date: 20131122
  Transmission Date: 20140711
  Serious: Yes (Other)
  Sender: FDA-Public Use
  Company Number: BR-AMGEN-BRACT2012015440

PATIENT
  Age: 71 Year
  Sex: Female
  Weight: 94 kg

DRUGS (9)
  1. ETANERCEPT [Suspect]
     Indication: PSORIATIC ARTHROPATHY
     Dosage: 50 MG, WEEKLY
     Route: 058
     Dates: start: 20090606, end: 201210
  2. ETANERCEPT [Suspect]
     Dosage: 50 MG, ONCE WEEKLY
     Route: 058
     Dates: start: 201211
  3. HYDROCHLOROTHIAZIDE [Concomitant]
     Dosage: 25 MG, 1X/DAY
  4. PARACETAMOL [Concomitant]
     Indication: PAIN
     Dosage: UNK, AS NEEDED
     Dates: start: 1992
  5. XEFO [Concomitant]
     Dosage: UNK
  6. TEGRETOL [Concomitant]
     Dosage: UNK
     Dates: start: 2010
  7. TOPIRAMATE [Concomitant]
     Dosage: UNK
  8. FLUOXETINE [Concomitant]
     Indication: DEPRESSION
     Dosage: UNK
     Dates: start: 1992
  9. PANTOPRAZOLE [Concomitant]
     Dosage: UNK

REACTIONS (15)
  - Back pain [Unknown]
  - Diabetes mellitus [Unknown]
  - Fall [Recovered/Resolved with Sequelae]
  - Joint dislocation [Unknown]
  - Joint injury [Unknown]
  - Limb asymmetry [Unknown]
  - Gait disturbance [Unknown]
  - Pruritus [Not Recovered/Not Resolved]
  - Wrong technique in drug usage process [Unknown]
  - Trigeminal neuralgia [Unknown]
  - Hypertension [Unknown]
  - Wound [Unknown]
  - Toothache [Unknown]
  - Injection site pain [Unknown]
  - Psoriasis [Unknown]
